FAERS Safety Report 7171046-8 (Version None)
Quarter: 2010Q4

REPORT INFORMATION
  Report Type: 
  Country: None (occurrence: None)
  Receive Date: 20101217
  Receipt Date: 20101203
  Transmission Date: 20110411
  Serious: Yes (Hospitalization)
  Sender: FDA-Public Use
  Company Number: GXKR2010BR14005

PATIENT
  Sex: Female
  Weight: 65 kg

DRUGS (6)
  1. AMINOPHYLLINE [Suspect]
     Indication: BRONCHITIS
     Dosage: 1 DF, TID
     Route: 048
  2. PAPAVERINE [Concomitant]
     Indication: RENAL PAIN
     Dosage: 1, 2 OR 3 TABLETS DAILY
     Route: 048
  3. FORMOTEROL W/BUDESONIDE [Concomitant]
  4. FORASEQ [Concomitant]
     Indication: BRONCHITIS
     Dosage: 1 INHALATION TWICE A DAY (IN THE MORNING AND AT NIGHT)
  5. FORASEQ [Concomitant]
     Dosage: 12/400 MEG 2 DAYS
  6. MIFLONIDE [Concomitant]
     Indication: BRONCHIECTASIS
     Dosage: 400 MEG TWICE A DAY (IN THE MORNING AND NIGHT)
     Route: 065

REACTIONS (2)
  - NEPHROLITHIASIS [None]
  - SYNCOPE [None]
